FAERS Safety Report 23825125 (Version 2)
Quarter: 2024Q2

REPORT INFORMATION
  Report Type: Spontaneous
  Country: US (occurrence: US)
  Receive Date: 20240507
  Receipt Date: 20240513
  Transmission Date: 20240716
  Serious: Yes (Life-Threatening, Other)
  Sender: FDA-Public Use
  Company Number: US-BRISTOL-MYERS SQUIBB COMPANY-2024-069804

PATIENT

DRUGS (1)
  1. KENALOG [Suspect]
     Active Substance: TRIAMCINOLONE ACETONIDE
     Indication: Product used for unknown indication

REACTIONS (20)
  - Infection [Unknown]
  - Respiratory failure [Unknown]
  - Asthenia [Unknown]
  - Shock [Unknown]
  - Arthritis bacterial [Unknown]
  - Haemarthrosis [Unknown]
  - Acute kidney injury [Recovering/Resolving]
  - Deep vein thrombosis [Unknown]
  - Empyema [Unknown]
  - Staphylococcal bacteraemia [Unknown]
  - Pneumonia staphylococcal [Unknown]
  - Pneumothorax [Unknown]
  - Subcutaneous emphysema [Unknown]
  - Pneumonia klebsiella [Unknown]
  - Lung abscess [Unknown]
  - Septic cardiomyopathy [Recovering/Resolving]
  - Drug eruption [Recovered/Resolved]
  - Hypertransaminasaemia [Recovering/Resolving]
  - Encephalopathy [Unknown]
  - Malnutrition [Unknown]

NARRATIVE: CASE EVENT DATE: 20231229
